FAERS Safety Report 5133142-6 (Version None)
Quarter: 2006Q4

REPORT INFORMATION
  Report Type: 
  Country: None (occurrence: None)
  Receive Date: 20061017
  Receipt Date: 20061005
  Transmission Date: 20070319
  Serious: Yes (Other)
  Sender: FDA-Public Use
  Company Number: 2006121698

PATIENT

DRUGS (2)
  1. NORVASC [Suspect]
     Dosage: ORAL
     Route: 048
  2. VOLTAREN [Concomitant]

REACTIONS (1)
  - NEPHRITIS INTERSTITIAL [None]
